FAERS Safety Report 4791298-9 (Version None)
Quarter: 2005Q4

REPORT INFORMATION
  Report Type: 
  Country: None (occurrence: None)
  Receive Date: 20051007
  Receipt Date: 20050930
  Transmission Date: 20060501
  Serious: Yes (Death)
  Sender: FDA-Public Use
  Company Number: 200513206FR

PATIENT
  Age: 75 Year
  Sex: Male

DRUGS (10)
  1. AMAREL [Suspect]
     Indication: DIABETES MELLITUS MALNUTRITION-RELATED
     Route: 048
     Dates: end: 20050311
  2. ALLOPURINOL [Suspect]
     Indication: HYPERURICAEMIA
     Route: 048
  3. MEDIATENSYL [Suspect]
     Indication: ESSENTIAL HYPERTENSION
     Route: 048
  4. FUROSEMIDE [Suspect]
     Route: 048
  5. ACTOS [Suspect]
     Route: 048
     Dates: start: 20050125, end: 20050306
  6. CRESTOR [Suspect]
     Indication: HYPERCHOLESTEROLAEMIA
     Route: 048
     Dates: start: 20050125, end: 20050306
  7. KARDEGIC [Concomitant]
     Route: 048
  8. ZOFENIL [Concomitant]
     Route: 048
  9. LEGALON [Concomitant]
     Route: 048
  10. CIRKAN [Concomitant]
     Route: 048

REACTIONS (3)
  - HEPATITIS [None]
  - METABOLIC ACIDOSIS [None]
  - RENAL FAILURE [None]
